FAERS Safety Report 12388623 (Version 3)
Quarter: 2016Q2

REPORT INFORMATION
  Report Type: Spontaneous
  Country: US (occurrence: US)
  Receive Date: 20160520
  Receipt Date: 20160628
  Transmission Date: 20160815
  Serious: No
  Sender: FDA-Public Use
  Company Number: US-PFIZER INC-2016228041

PATIENT
  Age: 56 Year
  Sex: Female
  Weight: 101 kg

DRUGS (1)
  1. FLECTOR [Suspect]
     Active Substance: DICLOFENAC EPOLAMINE
     Indication: TENDON PAIN
     Dosage: 1 DF, 2X/DAY(1 PATCH-1.3%, APPLY 1 PATCH TOPICALLY TWICE DAILY)
     Dates: start: 20160420, end: 20160420

REACTIONS (7)
  - Oropharyngeal discomfort [Recovered/Resolved]
  - Lip pain [Recovered/Resolved]
  - Feeling abnormal [Recovered/Resolved]
  - Dyspnoea [Recovered/Resolved]
  - Abdominal discomfort [Recovered/Resolved]
  - Throat tightness [Recovered/Resolved]
  - Paraesthesia oral [Recovered/Resolved]

NARRATIVE: CASE EVENT DATE: 20160420
